FAERS Safety Report 10513107 (Version 5)
Quarter: 2015Q1

REPORT INFORMATION
  Report Type: Spontaneous
  Country: SE (occurrence: SE)
  Receive Date: 20141013
  Receipt Date: 20150202
  Transmission Date: 20150720
  Serious: Yes (Other)
  Sender: FDA-Public Use
  Company Number: SE-009507513-1410SWE003438

PATIENT
  Age: 49 Year
  Sex: Male

DRUGS (2)
  1. FINASTERIDE. [Suspect]
     Active Substance: FINASTERIDE
     Dosage: 5 MG DAILY
     Route: 048
  2. TERFENADINE [Concomitant]
     Active Substance: TERFENADINE

REACTIONS (1)
  - Generalised tonic-clonic seizure [Recovered/Resolved]
